FAERS Safety Report 7429445-2 (Version None)
Quarter: 2011Q2

REPORT INFORMATION
  Report Type: 
  Country: None (occurrence: None)
  Receive Date: 20110419
  Receipt Date: 20110419
  Transmission Date: 20111010
  Serious: No
  Sender: FDA-Public Use
  Company Number: None

PATIENT
  Age: 58 Year
  Sex: Male

DRUGS (1)
  1. SUTENT [Suspect]
     Indication: RENAL CANCER
     Dosage: 50MG 1 QD X 4 WEEKS
     Dates: start: 20110324

REACTIONS (6)
  - SKIN EXFOLIATION [None]
  - NAUSEA [None]
  - DYSPNOEA [None]
  - ABDOMINAL DISCOMFORT [None]
  - PAIN OF SKIN [None]
  - CHEST PAIN [None]
